FAERS Safety Report 7731032-3 (Version None)
Quarter: 2011Q3

REPORT INFORMATION
  Report Type: 
  Country: None (occurrence: None)
  Receive Date: 20110906
  Receipt Date: 20110824
  Transmission Date: 20111222
  Serious: Yes (Other)
  Sender: FDA-Public Use
  Company Number: US-ELI_LILLY_AND_COMPANY-US201108008340

PATIENT
  Sex: Male

DRUGS (2)
  1. FORTEO [Suspect]
  2. PREDNISONE [Concomitant]

REACTIONS (6)
  - MUSCLE STRAIN [None]
  - FALL [None]
  - CONTUSION [None]
  - SKIN ATROPHY [None]
  - LUMBAR VERTEBRAL FRACTURE [None]
  - HYPOAESTHESIA [None]
